FAERS Safety Report 15751238 (Version 1)
Quarter: 2018Q4

REPORT INFORMATION
  Report Type: Spontaneous
  Country: US (occurrence: US)
  Receive Date: 20181206
  Receipt Date: 20181206
  Transmission Date: 20190205
  Serious: Yes (Hospitalization)
  Sender: FDA-Public Use
  Company Number: None

PATIENT
  Age: 1 Year
  Sex: Male
  Weight: 9 kg

DRUGS (1)
  1. INFANTS IBUPROFEN [Suspect]
     Active Substance: IBUPROFEN
     Indication: VOMITING
     Dosage: ?          QUANTITY:1.875 ML;?
     Route: 048
     Dates: start: 20181203, end: 20181204

REACTIONS (2)
  - Condition aggravated [None]
  - Vomiting [None]

NARRATIVE: CASE EVENT DATE: 20181203
